FAERS Safety Report 7329285-9 (Version None)
Quarter: 2011Q1

REPORT INFORMATION
  Report Type: 
  Country: None (occurrence: None)
  Receive Date: 20110303
  Receipt Date: 20110224
  Transmission Date: 20110831
  Serious: Yes (Hospitalization)
  Sender: FDA-Public Use
  Company Number: B0699336A

PATIENT
  Age: 48 Year
  Sex: Male
  Weight: 102.3 kg

DRUGS (3)
  1. AVANDIA [Suspect]
     Indication: DIABETES MELLITUS
     Dosage: 4MG TWICE PER DAY
     Route: 048
     Dates: start: 20001219, end: 20030815
  2. ZESTRIL [Concomitant]
  3. LIPITOR [Concomitant]

REACTIONS (3)
  - ANGINA UNSTABLE [None]
  - CORONARY ARTERY DISEASE [None]
  - CARDIAC FAILURE CONGESTIVE [None]
